FAERS Safety Report 7688584-1 (Version None)
Quarter: 2011Q3

REPORT INFORMATION
  Report Type: 
  Country: None (occurrence: None)
  Receive Date: 20110817
  Receipt Date: 20110804
  Transmission Date: 20111222
  Serious: Yes (Other)
  Sender: FDA-Public Use
  Company Number: IE-UCBSA-038325

PATIENT
  Sex: Female

DRUGS (1)
  1. KEPPRA [Suspect]
     Dosage: 250 MG IN THE MORNING AND 500 MG IN THE NIGHT

REACTIONS (2)
  - TRANSIENT ISCHAEMIC ATTACK [None]
  - DYSPHAGIA [None]
